FAERS Safety Report 13229191 (Version 2)
Quarter: 2017Q1

REPORT INFORMATION
  Report Type: Spontaneous
  Country: IN (occurrence: IN)
  Receive Date: 20170214
  Receipt Date: 20170220
  Transmission Date: 20170428
  Serious: Yes (Other)
  Sender: FDA-Public Use
  Company Number: IN-CIPLA LTD.-2017IN01839

PATIENT

DRUGS (1)
  1. RISPERIDONE. [Suspect]
     Active Substance: RISPERIDONE
     Indication: BIPOLAR DISORDER
     Dosage: 4 MG, TWO DOSES AT NIGHT FOR THREE YEARS
     Route: 065

REACTIONS (3)
  - Breast inflammation [Recovering/Resolving]
  - Drug ineffective [Unknown]
  - Hyperprolactinaemia [Unknown]
